FAERS Safety Report 7576574-9 (Version None)
Quarter: 2011Q2

REPORT INFORMATION
  Report Type: 
  Country: None (occurrence: None)
  Receive Date: 20110628
  Receipt Date: 20110614
  Transmission Date: 20111010
  Serious: Yes (Other)
  Sender: FDA-Public Use
  Company Number: GB-RANBAXY-2011R1-43004

PATIENT
  Age: 58 Year
  Sex: Male

DRUGS (1)
  1. SIMVASTATIN [Suspect]
     Indication: HYPERLIPIDAEMIA
     Dosage: 40 MG, QD
     Route: 048
     Dates: start: 20070801, end: 20110129

REACTIONS (7)
  - SYSTEMIC LUPUS ERYTHEMATOSUS [None]
  - ARTHRALGIA [None]
  - ERYTHEMA [None]
  - LIMB DISCOMFORT [None]
  - IRON DEFICIENCY ANAEMIA [None]
  - DERMATOMYOSITIS [None]
  - RASH MACULO-PAPULAR [None]
